FAERS Safety Report 5853411-1 (Version None)
Quarter: 2008Q3

REPORT INFORMATION
  Report Type: 
  Country: None (occurrence: None)
  Receive Date: 20080821
  Receipt Date: 20080812
  Transmission Date: 20090109
  Serious: Yes (Hospitalization)
  Sender: FDA-Public Use
  Company Number: TW-PFIZER INC-2008068048

PATIENT
  Sex: Female

DRUGS (20)
  1. CAMPTOSAR [Suspect]
     Indication: COLORECTAL CANCER
     Route: 042
     Dates: start: 20080805, end: 20080805
  2. BLINDED SU11248 (SU011248) [Suspect]
     Indication: COLORECTAL CANCER
     Route: 048
     Dates: start: 20080805, end: 20080811
  3. FLUOROURACIL [Suspect]
     Indication: COLORECTAL CANCER
     Dosage: TEXT:1700 MG  LOADING
     Route: 042
     Dates: start: 20080805, end: 20080807
  4. FLUOROURACIL [Suspect]
     Dosage: TEXT:1700 MG  INFUSION
     Route: 042
     Dates: start: 20080805, end: 20080807
  5. CALCIUM FOLINATE [Suspect]
     Indication: COLORECTAL CANCER
     Route: 042
     Dates: start: 20080805, end: 20080807
  6. GASCON [Concomitant]
     Indication: DYSPEPSIA
     Dates: start: 20080805, end: 20080810
  7. SENNOSIDES [Concomitant]
     Indication: CONSTIPATION
     Dates: start: 20080805, end: 20080810
  8. ALUSA [Concomitant]
     Indication: DYSPEPSIA
     Dates: start: 20080808, end: 20080810
  9. LORAZEPAM [Concomitant]
     Indication: ANXIETY
     Dates: start: 20080805, end: 20080806
  10. METOCLOPRAMIDE [Concomitant]
     Indication: PROPHYLAXIS OF NAUSEA AND VOMITING
     Dates: start: 20080805, end: 20080808
  11. SODIUM CHLORIDE [Concomitant]
     Dates: start: 20080805, end: 20080808
  12. TROPISETRON [Concomitant]
     Indication: PROPHYLAXIS OF NAUSEA AND VOMITING
     Dates: start: 20080805, end: 20080806
  13. ATROPIN [Concomitant]
     Indication: CHOLINERGIC SYNDROME
     Dates: start: 20080805, end: 20080805
  14. DIAZEPAM [Concomitant]
     Indication: ANXIETY
     Dates: start: 20080805, end: 20080808
  15. ORADEXON TAB [Concomitant]
     Indication: PROPHYLAXIS
     Dates: start: 20080805, end: 20080805
  16. ACETAMINOPHEN [Concomitant]
     Indication: WOUND COMPLICATION
     Dates: start: 20080729, end: 20080801
  17. CEPHALEXIN [Concomitant]
     Indication: PROPHYLAXIS
     Dates: start: 20080729, end: 20080801
  18. MAGNESIUM OXIDE [Concomitant]
     Indication: CONSTIPATION
     Dates: start: 20080724, end: 20080731
  19. POSTERISAN [Concomitant]
     Indication: HAEMORRHOIDS
     Dates: start: 20080724, end: 20080731
  20. POSTERISAN [Concomitant]
     Indication: CONSTIPATION

REACTIONS (2)
  - ASCITES [None]
  - ILEUS [None]
